FAERS Safety Report 4982465-X (Version None)
Quarter: 2006Q2

REPORT INFORMATION
  Report Type: 
  Country: None (occurrence: None)
  Receive Date: 20060419
  Receipt Date: 20060404
  Transmission Date: 20061013
  Serious: Yes (Hospitalization)
  Sender: FDA-Public Use
  Company Number: 2006BI005060

PATIENT
  Age: 57 Year
  Sex: Female
  Weight: 88.4514 kg

DRUGS (14)
  1. AVONEX [Suspect]
     Indication: MULTIPLE SCLEROSIS
     Dosage: 30 UG; QW; IM
     Route: 030
     Dates: start: 20030101, end: 20050901
  2. ALPHAGAN P [Concomitant]
  3. ACTOS [Concomitant]
  4. CLONIDINE [Concomitant]
  5. BACLOFEN [Concomitant]
  6. DIAZEPAM [Concomitant]
  7. GLIPIZIDE [Concomitant]
  8. IMIPRAMINE [Concomitant]
  9. LOTEL [Concomitant]
  10. OXYTROL [Concomitant]
  11. PRAVACHOL [Concomitant]
  12. ASPIRIN [Concomitant]
  13. POTASSIUM [Concomitant]
  14. PREVACID [Concomitant]

REACTIONS (1)
  - URINARY TRACT INFECTION [None]
